FAERS Safety Report 12522757 (Version 2)
Quarter: 2016Q3

REPORT INFORMATION
  Report Type: Spontaneous
  Country: IL (occurrence: IL)
  Receive Date: 20160701
  Receipt Date: 20160719
  Transmission Date: 20161109
  Serious: Yes (Other)
  Sender: FDA-Public Use
  Company Number: IL-GLAXOSMITHKLINE-IL2016GSK093866

PATIENT
  Age: 54 Year
  Sex: Female

DRUGS (1)
  1. RELVAR ELLIPTA [Suspect]
     Active Substance: FLUTICASONE FUROATE\VILANTEROL TRIFENATATE
     Indication: PRODUCT USED FOR UNKNOWN INDICATION
     Dosage: 92 UNK, UNK
     Route: 055

REACTIONS (4)
  - Laryngitis fungal [Not Recovered/Not Resolved]
  - Lip pain [Unknown]
  - Oral pain [Unknown]
  - Candida infection [Not Recovered/Not Resolved]
